FAERS Safety Report 7795616-9 (Version None)
Quarter: 2011Q4

REPORT INFORMATION
  Report Type: 
  Country: None (occurrence: None)
  Receive Date: 20111004
  Receipt Date: 20110927
  Transmission Date: 20120403
  Serious: Yes (Death, Hospitalization, Other)
  Sender: FDA-Public Use
  Company Number: CA-GLAXOSMITHKLINE-A0946249A

PATIENT
  Sex: Female

DRUGS (7)
  1. CALCIUM CARBONATE [Concomitant]
  2. VITAMIN D [Concomitant]
  3. ATIVAN [Concomitant]
  4. VAGIFEM [Concomitant]
  5. ACTIVELLE [Concomitant]
  6. TYKERB [Suspect]
     Indication: BREAST CANCER METASTATIC
     Dosage: 1250MG PER DAY
     Route: 048
     Dates: start: 20110715
  7. LIPITOR [Concomitant]

REACTIONS (1)
  - NEOPLASM MALIGNANT [None]
